FAERS Safety Report 10652533 (Version 1)
Quarter: 2014Q4

REPORT INFORMATION
  Report Type: Spontaneous
  Country: CH (occurrence: CH)
  Receive Date: 20141215
  Receipt Date: 20141215
  Transmission Date: 20150529
  Serious: Yes (Hospitalization)
  Sender: FDA-Public Use
  Company Number: CH-PFIZER INC-2014341695

PATIENT
  Age: 47 Year
  Sex: Female
  Weight: 82 kg

DRUGS (5)
  1. MORPHINE SULFATE. [Suspect]
     Active Substance: MORPHINE SULFATE
     Dosage: 260 MG, DAILY
     Route: 048
  2. MORPHINE SULFATE. [Suspect]
     Active Substance: MORPHINE SULFATE
     Indication: POLYSUBSTANCE DEPENDENCE
     Dosage: 290 MG, DAILY
     Route: 048
     Dates: start: 20140826
  3. XANAX [Concomitant]
     Active Substance: ALPRAZOLAM
     Dosage: 14 MG, DAILY
  4. MORPHINE SULFATE. [Suspect]
     Active Substance: MORPHINE SULFATE
     Dosage: 290 MG, DAILY
     Route: 048
     Dates: end: 20141031
  5. DORMICUM [Concomitant]
     Active Substance: MIDAZOLAM\MIDAZOLAM HYDROCHLORIDE
     Dosage: 30 MG, DAILY

REACTIONS (4)
  - Aggression [Recovering/Resolving]
  - Withdrawal syndrome [Recovering/Resolving]
  - Persecutory delusion [Recovering/Resolving]
  - Hallucination [Recovering/Resolving]

NARRATIVE: CASE EVENT DATE: 2014
